FAERS Safety Report 8346215-1 (Version None)
Quarter: 2012Q2

REPORT INFORMATION
  Report Type: 
  Country: None (occurrence: None)
  Receive Date: 20120509
  Receipt Date: 20120501
  Transmission Date: 20120825
  Serious: Yes (Hospitalization, Other)
  Sender: FDA-Public Use
  Company Number: US-US-EMD SERONO, INC.-7121094

PATIENT
  Sex: Female
  Weight: 43 kg

DRUGS (10)
  1. LISINOPRIL [Concomitant]
     Indication: HYPERTENSION
     Dates: start: 20070101
  2. REBIF [Suspect]
     Indication: MULTIPLE SCLEROSIS
     Route: 058
     Dates: start: 20091006, end: 20120225
  3. AMITRIPTYLINE HCL [Concomitant]
     Indication: SLEEP DISORDER
  4. CITALOPRAM HYDROBROMIDE [Concomitant]
     Indication: DEPRESSION
  5. CYCLOBENZAPRINE [Concomitant]
     Indication: MUSCLE SPASMS
  6. ALBUTEROL [Concomitant]
     Indication: BRONCHITIS
  7. AMBIEN [Concomitant]
     Indication: SLEEP DISORDER
  8. BUTALBITAL [Concomitant]
     Indication: HEADACHE
  9. TRAMADOL HYDROCHLORIDE [Concomitant]
     Indication: MYALGIA
  10. MECLIZINE [Concomitant]
     Indication: DIZZINESS

REACTIONS (4)
  - BREAST CANCER [None]
  - OESOPHAGEAL CARCINOMA [None]
  - HIATUS HERNIA [None]
  - CEREBROVASCULAR ACCIDENT [None]
